FAERS Safety Report 9014048 (Version 1)
Quarter: 2013Q1

REPORT INFORMATION
  Report Type: Spontaneous
  Country: US (occurrence: US)
  Receive Date: 20130115
  Receipt Date: 20130115
  Transmission Date: 20140127
  Serious: Yes (Other)
  Sender: FDA-Public Use
  Company Number: US-009507513-1301USA003549

PATIENT
  Age: 19 Year
  Sex: Male

DRUGS (5)
  1. SINGULAIR [Suspect]
     Indication: HEPATITIS B
  2. TRAZODONE HYDROCHLORIDE [Suspect]
  3. TRAMADOL HYDROCHLORIDE [Suspect]
  4. LYRICA [Suspect]
  5. BARACLUDE [Suspect]
     Dosage: SINCE 3 MONTHS
     Route: 048

REACTIONS (1)
  - Vasculitis [Unknown]
